FAERS Safety Report 25247931 (Version 4)
Quarter: 2025Q3

REPORT INFORMATION
  Report Type: Report from Study
  Country: US (occurrence: US)
  Receive Date: 20250429
  Receipt Date: 20250731
  Transmission Date: 20251021
  Serious: Yes (Hospitalization, Other)
  Sender: ABBVIE
  Company Number: US-ABBVIE-6242884

PATIENT
  Age: 82 Year
  Sex: Female

DRUGS (2)
  1. IMBRUVICA [Suspect]
     Active Substance: IBRUTINIB
     Indication: Chronic lymphocytic leukaemia (in remission)
     Dosage: LAST ADMIN DATE: 2025, MISSED 4FOUR DOSES
     Route: 048
     Dates: start: 20250115
  2. IMBRUVICA [Suspect]
     Active Substance: IBRUTINIB
     Indication: Chronic lymphocytic leukaemia (in remission)
     Route: 048

REACTIONS (8)
  - Urinary bladder haemorrhage [Unknown]
  - Renal impairment [Unknown]
  - Hospitalisation [Unknown]
  - Spinal operation [Unknown]
  - Medical device removal [Unknown]
  - Nephropathy [Unknown]
  - Contusion [Unknown]
  - Urostomy complication [Unknown]

NARRATIVE: CASE EVENT DATE: 20250101
